FAERS Safety Report 16571530 (Version 1)
Quarter: 2019Q3

REPORT INFORMATION
  Report Type: Spontaneous
  Country: US (occurrence: US)
  Receive Date: 20190531
  Receipt Date: 20190531
  Transmission Date: 20191004
  Serious: Yes (Other)
  Sender: FDA-Public Use
  Company Number: None

PATIENT
  Age: 58 Year
  Sex: Female
  Weight: 60.78 kg

DRUGS (4)
  1. REPATHA [Suspect]
     Active Substance: EVOLOCUMAB
     Indication: GLUCOSE TOLERANCE IMPAIRED
     Route: 058
     Dates: start: 20190502, end: 20190522
  2. MEDROL [Concomitant]
     Active Substance: METHYLPREDNISOLONE
  3. PEPCID [Concomitant]
     Active Substance: FAMOTIDINE
  4. ZYRTEC [Concomitant]
     Active Substance: CETIRIZINE HYDROCHLORIDE

REACTIONS (8)
  - Erythema [None]
  - Urticaria [None]
  - Myalgia [None]
  - Mechanical urticaria [None]
  - Abdominal pain upper [None]
  - Nausea [None]
  - Vomiting [None]
  - Pruritus [None]

NARRATIVE: CASE EVENT DATE: 20190520
